FAERS Safety Report 12572934 (Version 1)
Quarter: 2016Q3

REPORT INFORMATION
  Report Type: Spontaneous
  Country: GB (occurrence: GB)
  Receive Date: 20160720
  Receipt Date: 20160720
  Transmission Date: 20161109
  Serious: Yes (Other)
  Sender: FDA-Public Use
  Company Number: GB-ROCHE-1684230

PATIENT
  Sex: Female

DRUGS (4)
  1. DOCETAXEL. [Concomitant]
     Active Substance: DOCETAXEL
  2. PERTUZUMAB [Suspect]
     Active Substance: PERTUZUMAB
     Indication: PRODUCT USED FOR UNKNOWN INDICATION
     Route: 065
  3. CARBOPLATIN. [Concomitant]
     Active Substance: CARBOPLATIN
  4. HERCEPTIN [Suspect]
     Active Substance: TRASTUZUMAB
     Indication: PRODUCT USED FOR UNKNOWN INDICATION
     Dosage: CYCLE 11
     Route: 058
     Dates: start: 201506

REACTIONS (25)
  - Asthenia [Unknown]
  - Muscle spasms [Unknown]
  - Muscular weakness [Unknown]
  - Urinary tract infection [Unknown]
  - Visual acuity reduced [Unknown]
  - Pruritus [Unknown]
  - Arthralgia [Unknown]
  - Rash [Unknown]
  - General symptom [Unknown]
  - Hemiparesis [Unknown]
  - Fatigue [Unknown]
  - Glossodynia [Unknown]
  - Ulcer [Recovered/Resolved]
  - Influenza [Recovering/Resolving]
  - Pain in extremity [Unknown]
  - Dyspnoea exertional [Unknown]
  - Insomnia [Unknown]
  - Onychoclasis [Unknown]
  - Swelling [Unknown]
  - Diarrhoea [Unknown]
  - Pain [Unknown]
  - Tinnitus [Unknown]
  - Nail discolouration [Unknown]
  - Chest pain [Unknown]
  - Erythema [Unknown]
